FAERS Safety Report 9825403 (Version 1)
Quarter: 2014Q1

REPORT INFORMATION
  Report Type: Spontaneous
  Country: US (occurrence: US)
  Receive Date: 20140117
  Receipt Date: 20140117
  Transmission Date: 20141002
  Serious: No
  Sender: FDA-Public Use
  Company Number: US-PFIZER INC-2014014857

PATIENT
  Age: 57 Year
  Sex: Male
  Weight: 74.83 kg

DRUGS (4)
  1. GABAPENTIN [Suspect]
     Indication: DIABETIC NEUROPATHY
     Dosage: 50 MG, 2X/DAY
     Dates: start: 2011, end: 2013
  2. TYLENOL [Suspect]
     Indication: PAIN IN EXTREMITY
     Dosage: 1500 MG, 2X/DAY
     Dates: start: 201301
  3. TYLENOL [Suspect]
     Dosage: 3000 MG, 2X/DAY
  4. ASPIRIN [Concomitant]
     Indication: CARDIAC DISORDER
     Dosage: 81 MG, 1X/DAY

REACTIONS (2)
  - Drug ineffective [Unknown]
  - Abdominal pain upper [Unknown]
